FAERS Safety Report 22017423 (Version 1)
Quarter: 2023Q1

REPORT INFORMATION
  Report Type: Spontaneous
  Country: JP (occurrence: None)
  Receive Date: 20230221
  Receipt Date: 20230221
  Transmission Date: 20230417
  Serious: Yes (Other)
  Sender: FDA-Public Use
  Company Number: 2023A039352

PATIENT

DRUGS (1)
  1. IMFINZI [Suspect]
     Active Substance: DURVALUMAB
     Indication: Bile duct cancer
     Route: 041
     Dates: start: 202301, end: 202302

REACTIONS (2)
  - Malignant neoplasm progression [Not Recovered/Not Resolved]
  - Duodenal obstruction [Unknown]

NARRATIVE: CASE EVENT DATE: 20230201
